FAERS Safety Report 6941066-4 (Version None)
Quarter: 2010Q3

REPORT INFORMATION
  Report Type: 
  Country: None (occurrence: None)
  Receive Date: 20100824
  Receipt Date: 20100824
  Transmission Date: 20110219
  Serious: Yes (Hospitalization)
  Sender: FDA-Public Use
  Company Number: None

PATIENT
  Age: 50 Year
  Sex: Male
  Weight: 136.0791 kg

DRUGS (2)
  1. VIBATIV [Suspect]
     Indication: CELLULITIS
     Dosage: 1360MG Q24HOURS IV
     Route: 042
     Dates: start: 20100817, end: 20100818
  2. LEVAQUIN [Suspect]

REACTIONS (7)
  - BODY TEMPERATURE DECREASED [None]
  - CHILLS [None]
  - CYANOSIS [None]
  - HEART RATE INCREASED [None]
  - NAUSEA [None]
  - RENAL FAILURE ACUTE [None]
  - VOMITING [None]
